FAERS Safety Report 5961854-0 (Version None)
Quarter: 2008Q4

REPORT INFORMATION
  Report Type: 
  Country: None (occurrence: None)
  Receive Date: 20081121
  Receipt Date: 20080402
  Transmission Date: 20090506
  Serious: No
  Sender: FDA-Public Use
  Company Number: US-BRISTOL-MYERS SQUIBB COMPANY-14138242

PATIENT
  Age: 78 Year
  Sex: Male

DRUGS (1)
  1. AVALIDE [Suspect]
     Dates: start: 20071130

REACTIONS (1)
  - FLANK PAIN [None]
